FAERS Safety Report 20586905 (Version 2)
Quarter: 2025Q2

REPORT INFORMATION
  Report Type: Spontaneous
  Country: IT (occurrence: IT)
  Receive Date: 20220314
  Receipt Date: 20250621
  Transmission Date: 20250716
  Serious: Yes (Hospitalization, Other)
  Sender: AUROBINDO
  Company Number: IT-PFM-2021-09079

PATIENT
  Age: 22 Year
  Sex: Female

DRUGS (9)
  1. AZITHROMYCIN [Suspect]
     Active Substance: AZITHROMYCIN
     Indication: Eye pain
     Dosage: 250 MILLIGRAM, TWO TIMES A DAY
     Route: 065
  2. AZITHROMYCIN [Suspect]
     Active Substance: AZITHROMYCIN
     Indication: Photophobia
  3. AZITHROMYCIN [Suspect]
     Active Substance: AZITHROMYCIN
     Indication: Off label use
  4. TETRACYCLINE [Concomitant]
     Active Substance: TETRACYCLINE
     Indication: Photophobia
     Dosage: 3 DOSAGE FORM, ONCE A DAY TID (3/DAY)
     Route: 061
  5. TETRACYCLINE [Concomitant]
     Active Substance: TETRACYCLINE
     Indication: Eye pain
  6. Sulfamethylthiazole [Concomitant]
     Indication: Photophobia
     Dosage: 3 DOSAGE FORM, ONCE A DAY, TID (3/DAY)
     Route: 065
  7. Sulfamethylthiazole [Concomitant]
     Indication: Eye pain
  8. CEFTRIAXONE [Concomitant]
     Active Substance: CEFTRIAXONE
     Indication: Product used for unknown indication
     Dosage: 2 GRAM, ONCE A DAY
     Route: 065
  9. OFLOXACIN [Concomitant]
     Active Substance: OFLOXACIN
     Indication: Product used for unknown indication
     Route: 065

REACTIONS (5)
  - Condition aggravated [Unknown]
  - Drug ineffective [Unknown]
  - Product use in unapproved indication [Unknown]
  - Product use issue [Unknown]
  - Off label use [Unknown]
